FAERS Safety Report 7584977-1 (Version None)
Quarter: 2011Q2

REPORT INFORMATION
  Report Type: 
  Country: None (occurrence: None)
  Receive Date: 20110630
  Receipt Date: 20110510
  Transmission Date: 20111010
  Serious: Yes (Hospitalization)
  Sender: FDA-Public Use
  Company Number: BR-ASTRAZENECA-2011SE28041

PATIENT
  Age: 67 Year
  Sex: Female
  Weight: 54 kg

DRUGS (6)
  1. CRESTOR [Suspect]
     Indication: HYPERCHOLESTEROLAEMIA
     Dosage: UNKNOWN DOSE ONCE DAILY
     Route: 048
     Dates: start: 20070101, end: 20090401
  2. CRESTOR [Suspect]
     Route: 048
  3. CARDILOL [Concomitant]
     Route: 048
     Dates: start: 19950101
  4. CRESTOR [Suspect]
     Dosage: UNKNOWN DOSE ONCE DAILY
     Route: 048
     Dates: start: 20090401, end: 20110101
  5. ASPIRIN [Concomitant]
     Route: 048
     Dates: start: 20010101
  6. SPIRONOLACTONE [Concomitant]
     Route: 048
     Dates: start: 19950101

REACTIONS (4)
  - MYOCARDIAL INFARCTION [None]
  - ANGIOPLASTY [None]
  - BLOOD CHOLESTEROL INCREASED [None]
  - DRUG INEFFECTIVE [None]
